FAERS Safety Report 9795456 (Version 1)
Quarter: 2014Q1

REPORT INFORMATION
  Report Type: Report from Study
  Country: US (occurrence: US)
  Receive Date: 20140103
  Receipt Date: 20140103
  Transmission Date: 20141002
  Serious: Yes (Other)
  Sender: FDA-Public Use
  Company Number: US-ROCHE-1325475

PATIENT
  Sex: Male
  Weight: 23 kg

DRUGS (3)
  1. NUTROPIN AQ [Suspect]
     Indication: GROWTH HORMONE DEFICIENCY
     Route: 058
     Dates: start: 201012
  2. IBUPROFEN [Concomitant]
     Dosage: 100MG/5ML, 1 1/2 TEA SPOON, PRN
     Route: 048
  3. CLARITIN [Concomitant]

REACTIONS (10)
  - Dysmorphism [Unknown]
  - Thirst [Unknown]
  - Pollakiuria [Unknown]
  - Seasonal allergy [Unknown]
  - Decreased appetite [Unknown]
  - Weight gain poor [Unknown]
  - Ear pain [Unknown]
  - Abnormal behaviour [Unknown]
  - Testicular disorder [Unknown]
  - Disturbance in attention [Unknown]
